FAERS Safety Report 23980616 (Version 1)
Quarter: 2024Q2

REPORT INFORMATION
  Report Type: Spontaneous
  Country: US (occurrence: US)
  Receive Date: 20240617
  Receipt Date: 20240617
  Transmission Date: 20240716
  Serious: No
  Sender: FDA-Public Use
  Company Number: US-APOTEX-2023AP013545

PATIENT
  Age: 53 Year
  Sex: Male

DRUGS (3)
  1. GEMCITABINE [Suspect]
     Active Substance: GEMCITABINE
     Indication: Cholangiocarcinoma
     Dosage: 1000 MILLIGRAM/SQ. METER, OVER 30 MIN ON DAY 1 AND 8
     Route: 065
  2. GEMCITABINE [Suspect]
     Active Substance: GEMCITABINE
     Indication: BRCA2 gene mutation
  3. CISPLATIN [Suspect]
     Active Substance: CISPLATIN
     Indication: Cholangiocarcinoma
     Dosage: 25 MILLIGRAM/SQ. METER, OVER 2 HOURS, ON DAYS 1 AND 8
     Route: 065

REACTIONS (1)
  - Toxicity to various agents [Unknown]
